FAERS Safety Report 8369080-5 (Version None)
Quarter: 2012Q2

REPORT INFORMATION
  Report Type: 
  Country: None (occurrence: None)
  Receive Date: 20120516
  Receipt Date: 20120516
  Transmission Date: 20120825
  Serious: Yes (Death)
  Sender: FDA-Public Use
  Company Number: None

PATIENT
  Age: 82 Year
  Sex: Male
  Weight: 80 kg

DRUGS (1)
  1. FRAGMIN [Suspect]

REACTIONS (6)
  - DEHYDRATION [None]
  - CEREBRAL ATROPHY [None]
  - RENAL FAILURE ACUTE [None]
  - CEREBRAL MICROANGIOPATHY [None]
  - SUBDURAL HAEMATOMA [None]
  - INTRACRANIAL PRESSURE INCREASED [None]
